FAERS Safety Report 24173455 (Version 1)
Quarter: 2024Q3

REPORT INFORMATION
  Report Type: Spontaneous
  Country: IL (occurrence: IL)
  Receive Date: 20240805
  Receipt Date: 20240805
  Transmission Date: 20241017
  Serious: Yes (Hospitalization)
  Sender: NOVO NORDISK
  Company Number: IL-NOVOPROD-1261124

PATIENT
  Sex: Female

DRUGS (5)
  1. WEGOVY [Suspect]
     Active Substance: SEMAGLUTIDE
     Dosage: 1.7 MG
  2. WEGOVY [Suspect]
     Active Substance: SEMAGLUTIDE
     Dosage: 2.4 MG
     Dates: start: 20240501
  3. WEGOVY [Suspect]
     Active Substance: SEMAGLUTIDE
     Indication: Product used for unknown indication
     Dosage: UNK
     Dates: start: 202404
  4. BISACODYL [Concomitant]
     Active Substance: BISACODYL
     Dosage: UNK
  5. NORMALAX [BISACODYL] [Concomitant]
     Dosage: UNK

REACTIONS (3)
  - Feeding disorder [Unknown]
  - Vomiting [Unknown]
  - Wrong technique in product usage process [Unknown]
